FAERS Safety Report 13470983 (Version 1)
Quarter: 2017Q2

REPORT INFORMATION
  Report Type: Spontaneous
  Country: US (occurrence: US)
  Receive Date: 20170421
  Receipt Date: 20170421
  Transmission Date: 20170830
  Serious: Yes (Hospitalization)
  Sender: FDA-Public Use
  Company Number: None

PATIENT
  Age: 56 Year
  Sex: Female

DRUGS (7)
  1. AMOX [Concomitant]
     Active Substance: UNSPECIFIED INGREDIENT
  2. VIRTUSSIN [Concomitant]
  3. SILDENAFIL 20MG [Suspect]
     Active Substance: SILDENAFIL
     Indication: BRONCHITIS
     Route: 048
     Dates: start: 20161025
  4. SPIRONOLACT [Concomitant]
  5. METOLAZONE. [Concomitant]
     Active Substance: METOLAZONE
  6. LEVOTHYROXIN [Concomitant]
     Active Substance: LEVOTHYROXINE
  7. POTCL MICRO [Concomitant]

REACTIONS (1)
  - Hospitalisation [None]
